FAERS Safety Report 19219887 (Version 3)
Quarter: 2025Q4

REPORT INFORMATION
  Report Type: Report from Study
  Country: US (occurrence: US)
  Receive Date: 20210506
  Receipt Date: 20251016
  Transmission Date: 20260117
  Serious: Yes (Hospitalization, Other)
  Sender: KYOWA
  Company Number: US-KYOWAKIRIN-2021BKK007021

PATIENT

DRUGS (2)
  1. BUROSUMAB [Suspect]
     Active Substance: BUROSUMAB
     Indication: Hereditary hypophosphataemic rickets
     Dosage: 50 MG/ML, 1X/4 WEEKS
     Route: 065
     Dates: end: 202102
  2. BUROSUMAB [Suspect]
     Active Substance: BUROSUMAB
     Dosage: UNK, 1X/4 WEEKS
     Route: 065
     Dates: start: 20240326

REACTIONS (5)
  - Myocardial infarction [Not Recovered/Not Resolved]
  - Renal failure [Not Recovered/Not Resolved]
  - Clostridium difficile infection [Not Recovered/Not Resolved]
  - Renal impairment [Unknown]
  - Appendicectomy [Not Recovered/Not Resolved]

NARRATIVE: CASE EVENT DATE: 20210101
